FAERS Safety Report 18539765 (Version 1)
Quarter: 2020Q4

REPORT INFORMATION
  Report Type: Report from Study
  Country: US (occurrence: US)
  Receive Date: 20201124
  Receipt Date: 20201124
  Transmission Date: 20210114
  Serious: Yes (Other)
  Sender: FDA-Public Use
  Company Number: US-GILEAD-2020-0504398

PATIENT
  Age: 30 Year
  Sex: Male

DRUGS (19)
  1. FLONASE ALLERGY RELIEF [Concomitant]
     Active Substance: FLUTICASONE PROPIONATE
  2. PULMOZYME [Concomitant]
     Active Substance: DORNASE ALFA
  3. PREVACID [Concomitant]
     Active Substance: LANSOPRAZOLE
  4. SENNA [SENNA ALEXANDRINA] [Concomitant]
     Active Substance: SENNA LEAF
  5. MVW COMPLETE FORMULATION D3000 [Concomitant]
     Active Substance: VITAMINS\ZINC
  6. VITAMIN D2 [Concomitant]
     Active Substance: ERGOCALCIFEROL
  7. POLYETHYLENE GLYCOL 3350. [Concomitant]
     Active Substance: POLYETHYLENE GLYCOL 3350
  8. CALCIUM + VITAMIN D3 [Concomitant]
     Active Substance: CALCIUM CARBONATE\CHOLECALCIFEROL
  9. MAG64 [Concomitant]
     Active Substance: CALCIUM CHLORIDE\MAGNESIUM CHLORIDE
  10. TRIKAFTA [Concomitant]
     Active Substance: ELEXACAFTOR\IVACAFTOR\TEZACAFTOR
  11. POTASSIUM CHLORIDE. [Concomitant]
     Active Substance: POTASSIUM CHLORIDE
  12. AZTREONAM LYSINE [Suspect]
     Active Substance: AZTREONAM LYSINE
     Indication: CYSTIC FIBROSIS
     Dosage: 75 MG, TID EVERY OTHER MONTH
     Route: 055
  13. FLUTICASONE + SALMETEROL [Concomitant]
     Active Substance: FLUTICASONE FUROATE\SALMETEROL XINAFOATE
  14. FLORASTOR [LACTOBACILLUS ACIDOPHILUS] [Concomitant]
  15. VITAMIN D3 [Concomitant]
     Active Substance: CHOLECALCIFEROL
  16. ALBUTEROL SULFATE. [Concomitant]
     Active Substance: ALBUTEROL SULFATE
  17. HYPERSAL [Concomitant]
     Active Substance: SODIUM CHLORIDE
  18. ALBUTEROL SULFATE HFA [Concomitant]
     Active Substance: ALBUTEROL SULFATE
  19. CREON [Concomitant]
     Active Substance: PANCRELIPASE AMYLASE\PANCRELIPASE LIPASE\PANCRELIPASE PROTEASE

REACTIONS (2)
  - Mycobacterium avium complex infection [Unknown]
  - Sepsis [Unknown]
